FAERS Safety Report 24297128 (Version 2)
Quarter: 2024Q4

REPORT INFORMATION
  Report Type: Report from Study
  Country: CA (occurrence: CA)
  Receive Date: 20240909
  Receipt Date: 20241031
  Transmission Date: 20250114
  Serious: Yes (Hospitalization)
  Sender: CSL BEHRING
  Company Number: CA-BEH-2024169543

PATIENT
  Age: 61 Year
  Sex: Male
  Weight: 136.36 kg

DRUGS (8)
  1. HIZENTRA [Suspect]
     Active Substance: HUMAN IMMUNOGLOBULIN G
     Indication: Secondary immunodeficiency
     Dosage: 12 GRAM, QW
     Route: 065
     Dates: start: 20230213
  2. VENLAFAXINE [Concomitant]
     Active Substance: VENLAFAXINE HYDROCHLORIDE
  3. DILAUDID [Concomitant]
     Active Substance: HYDROMORPHONE HYDROCHLORIDE
  4. RUXOLITINIB [Concomitant]
     Active Substance: RUXOLITINIB
  5. OXAZEPAM [Concomitant]
     Active Substance: OXAZEPAM
  6. IRBESARTAN [Concomitant]
     Active Substance: IRBESARTAN
  7. VALACYCLOVIR [Concomitant]
     Active Substance: VALACYCLOVIR HYDROCHLORIDE
  8. INNOHEP [Concomitant]
     Active Substance: TINZAPARIN SODIUM

REACTIONS (5)
  - Septic shock [Unknown]
  - Asthenia [Unknown]
  - Fatigue [Unknown]
  - Product use issue [Unknown]
  - Infusion site pain [Unknown]

NARRATIVE: CASE EVENT DATE: 20240201
